FAERS Safety Report 10216216 (Version 2)
Quarter: 2014Q2

REPORT INFORMATION
  Report Type: Spontaneous
  Country: CA (occurrence: CA)
  Receive Date: 20140604
  Receipt Date: 20140604
  Transmission Date: 20141212
  Serious: Yes (Hospitalization, Other)
  Sender: FDA-Public Use
  Company Number: CA-BAXTER-2014BAX026964

PATIENT
  Age: 26 Year
  Sex: Female

DRUGS (6)
  1. DIANEAL PD4 SOLUTION WITH 2.5% DEXTROSE AND 2.5 MEQ/L CALCIUM [Suspect]
     Indication: DIABETIC END STAGE RENAL DISEASE
     Route: 033
     Dates: start: 2013
  2. DIANEAL PD4 SOLUTION WITH 2.5% DEXTROSE AND 2.5 MEQ/L CALCIUM [Suspect]
     Indication: PERITONEAL DIALYSIS
  3. DIANEAL PD4 SOLUTION WITH 2.5% DEXTROSE AND 2.5 MEQ/L CALCIUM [Suspect]
     Indication: PERITONEAL DIALYSIS
  4. EXTRANEAL [Suspect]
     Indication: DIABETIC END STAGE RENAL DISEASE
     Route: 033
     Dates: start: 2013
  5. EXTRANEAL [Suspect]
     Indication: PERITONEAL DIALYSIS
  6. EXTRANEAL [Suspect]
     Indication: PERITONEAL DIALYSIS

REACTIONS (7)
  - Renal failure [Not Recovered/Not Resolved]
  - Peritoneal dialysis complication [Recovered/Resolved]
  - Blood glucose decreased [Recovered/Resolved]
  - Asthenia [Not Recovered/Not Resolved]
  - Fall [Recovered/Resolved]
  - Head injury [Recovered/Resolved]
  - Headache [Not Recovered/Not Resolved]
